FAERS Safety Report 19349609 (Version 1)
Quarter: 2021Q2

REPORT INFORMATION
  Report Type: Spontaneous
  Country: US (occurrence: US)
  Receive Date: 20210531
  Receipt Date: 20210531
  Transmission Date: 20210717
  Serious: Yes (Disabling)
  Sender: FDA-Public Use
  Company Number: None

PATIENT
  Age: 70 Year
  Sex: Female
  Weight: 53.55 kg

DRUGS (1)
  1. BUPRENORPHINE TRANSDERMAL SYSTEM [Suspect]
     Active Substance: BUPRENORPHINE
     Indication: ARTHRALGIA
     Dosage: ?          OTHER STRENGTH:5 MCG;QUANTITY:4 PATCH(ES);OTHER FREQUENCY:1PATCH EVERY 7 DAY;?
     Route: 062
     Dates: start: 20210512, end: 20210528

REACTIONS (6)
  - Fatigue [None]
  - Depression [None]
  - Disturbance in attention [None]
  - Nausea [None]
  - Anal incontinence [None]
  - Vomiting [None]

NARRATIVE: CASE EVENT DATE: 20210524
